FAERS Safety Report 16584968 (Version 3)
Quarter: 2019Q3

REPORT INFORMATION
  Report Type: Report from Study
  Country: None (occurrence: ES)
  Receive Date: 20190717
  Receipt Date: 20190718
  Transmission Date: 20191004
  Serious: Yes (Death, Hospitalization)
  Sender: FDA-Public Use
  Company Number: ES-ABBVIE-19K-144-2855350-00

PATIENT
  Age: 71 Year
  Sex: Female
  Weight: 71 kg

DRUGS (1)
  1. DUODOPA [Suspect]
     Active Substance: CARBIDOPA\LEVODOPA
     Indication: PARKINSON^S DISEASE
     Dosage: 20MG/ML, 5MG/ML
     Route: 050
     Dates: start: 20180412

REACTIONS (5)
  - Loss of consciousness [Unknown]
  - Fall [Fatal]
  - Cerebral haemorrhage [Fatal]
  - Coma [Fatal]
  - Headache [Fatal]

NARRATIVE: CASE EVENT DATE: 201907
